FAERS Safety Report 16871430 (Version 1)
Quarter: 2020Q3

REPORT INFORMATION
  Report Type: Spontaneous
  Country: US (occurrence: US)
  Receive Date: 20190923
  Receipt Date: 20190923
  Transmission Date: 20201105
  Serious: Yes (Hospitalization, Other)
  Sender: FDA-Public Use
  Company Number: None

PATIENT
  Age: 64 Year
  Sex: Male

DRUGS (17)
  1. GABAPENTIN 100 MG [Concomitant]
     Active Substance: GABAPENTIN
  2. BACLOFEN 5 MG [Concomitant]
     Active Substance: BACLOFEN
  3. FERROUS SULFATE. [Suspect]
     Active Substance: FERROUS SULFATE
     Indication: ANAEMIA
     Route: 048
     Dates: start: 20190111, end: 20190729
  4. METFORMIN [Concomitant]
     Active Substance: METFORMIN HYDROCHLORIDE
  5. ISOSORBIDE DINITRATE 5 MG [Concomitant]
     Active Substance: ISOSORBIDE DINITRATE
  6. ATORVASTATIN 20 MG [Concomitant]
     Active Substance: ATORVASTATIN
  7. MIRALAX 17 GM [Concomitant]
  8. FLUOXETINE [Concomitant]
     Active Substance: FLUOXETINE HYDROCHLORIDE
  9. PANTOPRAZOLE 40 MG [Concomitant]
     Active Substance: PANTOPRAZOLE SODIUM
  10. INSULIN GLARGINE 22 UNITS [Concomitant]
  11. METOPROLOL 25 MG [Concomitant]
     Active Substance: METOPROLOL
  12. MELATONIN 9 MG [Concomitant]
  13. ZOLPIDEM [Concomitant]
     Active Substance: ZOLPIDEM TARTRATE
  14. BUSPIRONE 5 MG [Concomitant]
  15. SIMETHICONE 80 MG [Concomitant]
  16. SENNOSIDES?DOCUSATE 8.6?50 MG [Concomitant]
  17. DONEPEZIL 10 MG [Concomitant]
     Active Substance: DONEPEZIL HYDROCHLORIDE

REACTIONS (2)
  - Gastritis erosive [None]
  - Ulcerative gastritis [None]

NARRATIVE: CASE EVENT DATE: 20190729
